FAERS Safety Report 17569525 (Version 1)
Quarter: 2020Q1

REPORT INFORMATION
  Report Type: Spontaneous
  Country: JP (occurrence: JP)
  Receive Date: 20200323
  Receipt Date: 20200323
  Transmission Date: 20200409
  Serious: Yes (Hospitalization, Other)
  Sender: FDA-Public Use
  Company Number: JP-ALVOGEN-2020-ALVOGEN-107920

PATIENT
  Sex: Female
  Weight: 2.08 kg

DRUGS (5)
  1. VINCRISTINE [Suspect]
     Active Substance: VINCRISTINE
     Indication: PRODUCT USED FOR UNKNOWN INDICATION
     Dosage: INITIATED ON DAY 0 AT 16 WEEKS OF PREGNANCY
     Route: 064
  2. PREDNISONE. [Suspect]
     Active Substance: PREDNISONE
     Indication: PRODUCT USED FOR UNKNOWN INDICATION
     Dosage: INITIATED ON DAY 0 AT 16 WEEKS OF PREGNANCY
     Route: 064
  3. DOXORUBICIN [Suspect]
     Active Substance: DOXORUBICIN
     Indication: PRODUCT USED FOR UNKNOWN INDICATION
     Dosage: INITIATED ON DAY 0 AT 16 WEEKS OF PREGNANCY
     Route: 064
  4. CYCLOPHOSPHAMIDE. [Suspect]
     Active Substance: CYCLOPHOSPHAMIDE
     Indication: PRODUCT USED FOR UNKNOWN INDICATION
     Dosage: INITIATED ON DAY 0 AT 16 WEEKS OF PREGNANCY
     Route: 064
  5. RITUXIMAB. [Suspect]
     Active Substance: RITUXIMAB
     Indication: PRODUCT USED FOR UNKNOWN INDICATION
     Dosage: ON DAY 0 AT 25 WEEKS, RITUXIMAB WAS ADDED
     Route: 064

REACTIONS (4)
  - Transient tachypnoea of the newborn [Recovered/Resolved]
  - B-lymphocyte count decreased [Recovered/Resolved]
  - Weight fluctuation [Unknown]
  - Foetal exposure during pregnancy [Unknown]
